FAERS Safety Report 16784448 (Version 1)
Quarter: 2019Q3

REPORT INFORMATION
  Report Type: Spontaneous
  Country: US (occurrence: US)
  Receive Date: 20190717
  Receipt Date: 20190717
  Transmission Date: 20191005
  Serious: No
  Sender: FDA-Public Use
  Company Number: None

PATIENT

DRUGS (1)
  1. DIAZEPAM. [Suspect]
     Active Substance: DIAZEPAM
     Dosage: ?          OTHER FREQUENCY:SINGLE DOSE 10 SYR;OTHER ROUTE:INJECTIONS?

REACTIONS (3)
  - Physical product label issue [None]
  - Product outer packaging issue [None]
  - Circumstance or information capable of leading to medication error [None]
